FAERS Safety Report 7960036-0 (Version None)
Quarter: 2011Q4

REPORT INFORMATION
  Report Type: 
  Country: None (occurrence: None)
  Receive Date: 20111206
  Receipt Date: 20111123
  Transmission Date: 20120403
  Serious: Yes (Other)
  Sender: FDA-Public Use
  Company Number: PHHY2011BR103424

PATIENT
  Sex: Female

DRUGS (2)
  1. FORMOTEROL FUMARATE [Suspect]
     Indication: DYSPNOEA
     Dosage: UNK
     Dates: start: 20060101
  2. CORTICOSTEROID NOS [Concomitant]

REACTIONS (3)
  - SWELLING [None]
  - WEIGHT INCREASED [None]
  - DEFORMITY [None]
